FAERS Safety Report 8624106 (Version 3)
Quarter: 2012Q4

REPORT INFORMATION
  Report Type: 
  Country: US (occurrence: US)
  Receive Date: 20120620
  Receipt Date: 20120911
  Transmission Date: 20130627
  Serious: Yes (Other)
  Sender: FDA-Public Use
  Company Number: US-INCYTE CORPORATION-2012IN001045

PATIENT
  Age: 53 None
  Sex: Female
  Weight: 56.69 kg

DRUGS (7)
  1. JAKAFI [Suspect]
     Indication: MYELOFIBROSIS
     Dosage: 10 mg, bid
     Route: 048
     Dates: start: 20120213, end: 20120510
  2. FERROUS SULFATE [Concomitant]
  3. OMEGA 3 FISH OIL [Concomitant]
  4. FLUOXETINE [Concomitant]
  5. HYDROCODONE W/ACETAMINOPHEN [Concomitant]
  6. LEVOTHYROXINE [Concomitant]
  7. LORAZEPAM [Concomitant]

REACTIONS (10)
  - Pancytopenia [Not Recovered/Not Resolved]
  - Anaemia [None]
  - Gastroenteritis viral [Recovered/Resolved]
  - Early satiety [Not Recovered/Not Resolved]
  - Fatigue [Not Recovered/Not Resolved]
  - Dyspnoea [Not Recovered/Not Resolved]
  - Weight decreased [Not Recovered/Not Resolved]
  - Urinary tract infection [Recovered/Resolved]
  - Abdominal distension [Not Recovered/Not Resolved]
  - Aphthous stomatitis [Not Recovered/Not Resolved]
